FAERS Safety Report 9436906 (Version 2)
Quarter: 2013Q3

REPORT INFORMATION
  Report Type: Spontaneous
  Country: US (occurrence: US)
  Receive Date: 20130802
  Receipt Date: 20130906
  Transmission Date: 20140515
  Serious: No
  Sender: FDA-Public Use
  Company Number: US-PFIZER INC-2013225082

PATIENT
  Age: 40 Year
  Sex: Female

DRUGS (1)
  1. DILANTIN-125 [Suspect]
     Dosage: UNK, 2X/DAY
     Route: 048

REACTIONS (2)
  - Rash [Recovered/Resolved]
  - Malabsorption [Unknown]
